FAERS Safety Report 5947907-1 (Version None)
Quarter: 2008Q4

REPORT INFORMATION
  Report Type: 
  Country: None (occurrence: None)
  Receive Date: 20081111
  Receipt Date: 20080812
  Transmission Date: 20090506
  Serious: No
  Sender: FDA-Public Use
  Company Number: A0742205A

PATIENT
  Age: 62 Year
  Sex: Female

DRUGS (6)
  1. TREXIMET [Suspect]
     Indication: MIGRAINE
     Route: 048
     Dates: start: 20080801
  2. HORMONE REPLACEMENT THERAPY [Concomitant]
  3. RESTASIS [Concomitant]
     Route: 047
  4. FLEXERIL [Concomitant]
  5. ACTONEL [Concomitant]
  6. IMITREX [Concomitant]
     Dosage: 100MG AS REQUIRED
     Route: 048

REACTIONS (1)
  - DRUG INEFFECTIVE [None]
